FAERS Safety Report 8479111-X (Version None)
Quarter: 2012Q2

REPORT INFORMATION
  Report Type: 
  Country: None (occurrence: None)
  Receive Date: 20120629
  Receipt Date: 20120620
  Transmission Date: 20120825
  Serious: Yes (Hospitalization, Other)
  Sender: FDA-Public Use
  Company Number: PHHY2012JP052928

PATIENT
  Age: 44 Year
  Sex: Male

DRUGS (3)
  1. ZYPREXA [Concomitant]
     Dosage: UNK UKN, UNK
  2. IMPROMEN [Concomitant]
     Dosage: UNK UKN, UNK
  3. GILENYA [Suspect]
     Indication: MULTIPLE SCLEROSIS
     Dosage: 0.5 MG, DAILY
     Route: 048
     Dates: start: 20120229

REACTIONS (3)
  - RETINAL DETACHMENT [None]
  - VISUAL ACUITY REDUCED [None]
  - VITREOUS DISORDER [None]
